FAERS Safety Report 7237331-6 (Version None)
Quarter: 2011Q1

REPORT INFORMATION
  Report Type: 
  Country: None (occurrence: None)
  Receive Date: 20110121
  Receipt Date: 20110113
  Transmission Date: 20110831
  Serious: Yes (Hospitalization, Other)
  Sender: FDA-Public Use
  Company Number: US-ASTRAZENECA-2007UW25510

PATIENT
  Age: 13891 Day
  Sex: Male
  Weight: 111.1 kg

DRUGS (29)
  1. GLUCOVANCE [Concomitant]
     Indication: DIABETES MELLITUS
     Route: 048
     Dates: start: 20050805
  2. CYMBALTA [Concomitant]
     Indication: DEPRESSION
     Dosage: 30-60 MG
     Route: 048
  3. CELEXA [Concomitant]
     Route: 065
  4. ZOLOFT [Concomitant]
     Route: 065
  5. SEROQUEL [Suspect]
     Indication: DEPRESSION
     Dosage: 25-800 MG
     Route: 048
     Dates: start: 20040514
  6. LIPITOR [Concomitant]
     Indication: BLOOD CHOLESTEROL INCREASED
     Dosage: 10-20 MG
     Route: 065
  7. TYLENOL-500 [Concomitant]
     Indication: PAIN
     Dosage: 325-3000MG
     Route: 048
  8. SEROQUEL [Suspect]
     Dosage: 100-800 MG
     Route: 048
     Dates: start: 20040520, end: 20070226
  9. GLUCOPHAGE [Concomitant]
     Indication: DIABETES MELLITUS
     Route: 065
  10. KETOROLAC TROMETHAMINE [Concomitant]
     Route: 065
  11. SEROQUEL [Suspect]
     Indication: ANXIETY
     Dosage: 25-800 MG
     Route: 048
     Dates: start: 20040514
  12. ZOCOR [Concomitant]
     Route: 065
  13. CYCLOBENZAPR [Concomitant]
     Route: 065
  14. WELLBUTRIN [Concomitant]
     Dosage: 100-200MG
     Route: 065
  15. SEROQUEL [Suspect]
     Indication: SLEEP DISORDER
     Dosage: 25-800 MG
     Route: 048
     Dates: start: 20040514
  16. SEROQUEL [Suspect]
     Dosage: 100-800 MG
     Route: 048
     Dates: start: 20040520, end: 20070226
  17. SEROQUEL [Suspect]
     Dosage: 100-800 MG
     Route: 048
     Dates: start: 20040520, end: 20070226
  18. GABAPENTIN [Concomitant]
     Route: 065
  19. GEMFIBROZIL [Concomitant]
     Route: 065
  20. SULINDAC [Concomitant]
     Route: 065
  21. REMERON [Concomitant]
     Dosage: 15-45 MG
     Route: 048
  22. COGENTIN [Concomitant]
     Route: 048
  23. SEROQUEL [Suspect]
     Indication: AGGRESSION
     Dosage: 25-800 MG
     Route: 048
     Dates: start: 20040514
  24. TRAZODONE [Concomitant]
     Dosage: 50-100 MG
     Route: 065
  25. TRICOR [Concomitant]
     Indication: BLOOD CHOLESTEROL INCREASED
     Route: 065
  26. BENADRYL [Concomitant]
     Indication: INSOMNIA
     Route: 065
  27. DULCOLAX [Concomitant]
     Indication: CONSTIPATION
     Dosage: 5 MG, 2 TABLETS
     Route: 048
  28. SEROQUEL [Suspect]
     Dosage: 100-800 MG
     Route: 048
     Dates: start: 20040520, end: 20070226
  29. MYLANTA [Concomitant]
     Dosage: 30 CC, ONCE DAILY
     Route: 065

REACTIONS (12)
  - TYPE 2 DIABETES MELLITUS [None]
  - RENAL CYST [None]
  - SINUS CONGESTION [None]
  - FLANK PAIN [None]
  - HYPERTENSION [None]
  - SUICIDAL IDEATION [None]
  - OBESITY [None]
  - MAJOR DEPRESSION [None]
  - BACK PAIN [None]
  - CONSTIPATION [None]
  - HEADACHE [None]
  - SUPRAPUBIC PAIN [None]
